FAERS Safety Report 7661161-4 (Version None)
Quarter: 2011Q3

REPORT INFORMATION
  Report Type: 
  Country: None (occurrence: None)
  Receive Date: 20110805
  Receipt Date: 20101111
  Transmission Date: 20111222
  Serious: No
  Sender: FDA-Public Use
  Company Number: US-ABBOTT-10P-163-0684850-00

PATIENT
  Sex: Male
  Weight: 99.88 kg

DRUGS (3)
  1. CHOLESTEROL MEDICINE [Concomitant]
     Indication: PRODUCT USED FOR UNKNOWN INDICATION
  2. ASPIRIN [Concomitant]
     Indication: PRODUCT USED FOR UNKNOWN INDICATION
  3. NIASPAN [Suspect]
     Indication: PRODUCT USED FOR UNKNOWN INDICATION
     Dates: start: 20100901

REACTIONS (3)
  - PRURITUS GENERALISED [None]
  - GENERALISED ERYTHEMA [None]
  - PARAESTHESIA [None]
